FAERS Safety Report 17770580 (Version 3)
Quarter: 2021Q4

REPORT INFORMATION
  Report Type: Spontaneous
  Country: US (occurrence: US)
  Receive Date: 20200512
  Receipt Date: 20211001
  Transmission Date: 20220303
  Serious: Yes (Other)
  Sender: FDA-Public Use
  Company Number: US-PFIZER INC-2020188458

PATIENT
  Age: 57 Year
  Sex: Female

DRUGS (1)
  1. LYRICA [Suspect]
     Active Substance: PREGABALIN
     Dosage: 75 MG, 1X/DAY [75 MG ONE QD (ONCE A DAY)]
     Route: 048

REACTIONS (4)
  - Neoplasm malignant [Unknown]
  - Memory impairment [Unknown]
  - Illness [Unknown]
  - Aphonia [Unknown]
